FAERS Safety Report 18575060 (Version 1)
Quarter: 2020Q4

REPORT INFORMATION
  Report Type: Spontaneous
  Country: US (occurrence: US)
  Receive Date: 20201203
  Receipt Date: 20201203
  Transmission Date: 20210114
  Serious: No
  Sender: FDA-Public Use
  Company Number: US-PFIZER INC-2020473776

PATIENT
  Age: 61 Year
  Sex: Female

DRUGS (1)
  1. XELJANZ [Suspect]
     Active Substance: TOFACITINIB CITRATE
     Indication: RHEUMATOID ARTHRITIS
     Dosage: 5 MG, 2X/DAY
     Route: 048
     Dates: start: 202004

REACTIONS (7)
  - Arthritis [Recovering/Resolving]
  - Pain in extremity [Unknown]
  - Gait inability [Recovered/Resolved]
  - Depressed mood [Unknown]
  - Discouragement [Unknown]
  - Arthralgia [Unknown]
  - Emotional disorder [Unknown]
